FAERS Safety Report 7171212-1 (Version None)
Quarter: 2010Q4

REPORT INFORMATION
  Report Type: 
  Country: None (occurrence: None)
  Receive Date: 20101123
  Receipt Date: 20100823
  Transmission Date: 20110411
  Serious: No
  Sender: FDA-Public Use
  Company Number: 016363

PATIENT
  Sex: Male
  Weight: 86.2 kg

DRUGS (16)
  1. CIMZIA [Suspect]
     Indication: CROHN'S DISEASE
     Dosage: 2 SHOTS (DOSES) OF CIMZIA OF UNSPECIFIED DOSAGE MONTHLY SUBCUTANEOUS
     Route: 058
     Dates: start: 20100301
  2. PENTASA [Concomitant]
  3. LEVSIN [Concomitant]
  4. FUROSET [Concomitant]
  5. WARFARIN [Concomitant]
  6. ACIPHEX [Concomitant]
  7. COMPAZINE [Concomitant]
  8. LOMOTIL /00034001/ [Concomitant]
  9. METOPROLOL [Concomitant]
  10. NEURONTIN [Concomitant]
  11. PERCOCET [Concomitant]
  12. SOMA [Concomitant]
  13. FENTANYL [Concomitant]
  14. CITRACAL [Concomitant]
  15. TRIFLEX /02118501/ [Concomitant]
  16. LORCET-HD [Concomitant]

REACTIONS (2)
  - HEADACHE [None]
  - INSOMNIA [None]
